FAERS Safety Report 7444670-2 (Version None)
Quarter: 2011Q2

REPORT INFORMATION
  Report Type: 
  Country: None (occurrence: None)
  Receive Date: 20110429
  Receipt Date: 20110420
  Transmission Date: 20111010
  Serious: Yes (Hospitalization, Other)
  Sender: FDA-Public Use
  Company Number: IN-NOVOPROD-318825

PATIENT
  Age: 50 Year
  Sex: Male
  Weight: 98 kg

DRUGS (2)
  1. VICTOZA [Suspect]
     Indication: DIABETES MELLITUS INADEQUATE CONTROL
  2. VICTOZA [Suspect]
     Indication: OBESITY
     Dosage: UNK
     Dates: start: 20100817, end: 20101115

REACTIONS (1)
  - RENAL CELL CARCINOMA [None]
